FAERS Safety Report 13120136 (Version 1)
Quarter: 2017Q1

REPORT INFORMATION
  Report Type: Spontaneous
  Country: US (occurrence: US)
  Receive Date: 20170117
  Receipt Date: 20170117
  Transmission Date: 20170428
  Serious: Yes (Other)
  Sender: FDA-Public Use
  Company Number: PHEH2017US001090

PATIENT
  Age: 38 Year
  Sex: Female

DRUGS (4)
  1. ZYKADIA [Suspect]
     Active Substance: CERITINIB
     Indication: NON-SMALL CELL LUNG CANCER METASTATIC
     Dosage: UNK
     Route: 065
     Dates: start: 201505
  2. ALECTINIB [Suspect]
     Active Substance: ALECTINIB
     Dosage: 900 MG, BID
     Route: 048
  3. CRIZOTINIB [Suspect]
     Active Substance: CRIZOTINIB
     Indication: NON-SMALL CELL LUNG CANCER METASTATIC
     Dosage: 250 MG, BID
     Route: 048
     Dates: start: 20150113
  4. ALECTINIB [Suspect]
     Active Substance: ALECTINIB
     Indication: NON-SMALL CELL LUNG CANCER METASTATIC
     Dosage: 600 MG, BID
     Route: 048
     Dates: start: 20151218

REACTIONS (11)
  - Malignant neoplasm progression [Unknown]
  - Back pain [Unknown]
  - Metastases to liver [Unknown]
  - Headache [Unknown]
  - Lung neoplasm malignant [Unknown]
  - Therapy partial responder [Unknown]
  - Metastases to central nervous system [Unknown]
  - Photopsia [Unknown]
  - Lung adenocarcinoma [Unknown]
  - Metastases to bone [Unknown]
  - Pain [Unknown]

NARRATIVE: CASE EVENT DATE: 201509
